FAERS Safety Report 7868038-X (Version None)
Quarter: 2011Q4

REPORT INFORMATION
  Report Type: 
  Country: None (occurrence: None)
  Receive Date: 20111028
  Receipt Date: 20111025
  Transmission Date: 20120403
  Serious: Yes (Other)
  Sender: FDA-Public Use
  Company Number: US-BAYER-2011-078173

PATIENT
  Age: 69 Year
  Sex: Male
  Weight: 108 kg

DRUGS (10)
  1. MDX-010 [Suspect]
     Dosage: 10MG/KG
     Route: 042
     Dates: start: 20110822, end: 20110822
  2. SIMVASTATIN [Concomitant]
     Dosage: DAILY DOSE 10 MG
     Route: 048
  3. OMEGA-3 FATTY ACIDS [Concomitant]
     Dosage: 1 CAP DAILY
  4. ACETAMINOPHEN [Concomitant]
     Dosage: PER PM
  5. SARGRAMOSTIM [Suspect]
     Indication: MALIGNANT MELANOMA
     Dosage: DAILY DOSE 250 MCG/24HR
     Route: 058
     Dates: start: 20110803
  6. SARGRAMOSTIM [Suspect]
     Dosage: DAILY DOSE 250 MCG/24HR
     Route: 058
     Dates: start: 20110822
  7. ASPIRIN [Concomitant]
     Dosage: DAILY DOSE 325 MG
  8. ATARAX [ALPRAZOLAM] [Concomitant]
     Dosage: DAILY DOSE 25 MG
  9. MULTIVITAMIN PREPARATION + MINERAL SUPPLEMENT [Concomitant]
     Dosage: DAILY
     Route: 048
  10. MDX-010 [Suspect]
     Indication: MALIGNANT MELANOMA
     Dosage: 10MG/KG
     Route: 042
     Dates: start: 20110803, end: 20110803

REACTIONS (1)
  - HYPERURICAEMIA [None]
